FAERS Safety Report 8920589 (Version 1)
Quarter: 2012Q4

REPORT INFORMATION
  Report Type: 
  Country: US (occurrence: US)
  Receive Date: 20121121
  Receipt Date: 20121121
  Transmission Date: 20130627
  Serious: No
  Sender: FDA-Public Use
  Company Number: US-PFIZER INC-2012289896

PATIENT
  Age: 52 Year
  Sex: Male
  Weight: 136 kg

DRUGS (4)
  1. NEURONTIN [Suspect]
     Indication: NEUROPATHY NOS
     Dosage: UNK
  2. NEURONTIN [Suspect]
     Dosage: 900 mg, 3x/day
  3. GLUCOTROL [Concomitant]
  4. NORVASC [Concomitant]

REACTIONS (2)
  - Pain in extremity [Unknown]
  - Dysstasia [Unknown]
